FAERS Safety Report 13100696 (Version 1)
Quarter: 2017Q1

REPORT INFORMATION
  Report Type: Spontaneous
  Country: US (occurrence: US)
  Receive Date: 20170110
  Receipt Date: 20170110
  Transmission Date: 20170428
  Serious: No
  Sender: FDA-Public Use
  Company Number: US-TEVA-726156ACC

PATIENT
  Sex: Female

DRUGS (25)
  1. CALCIUM/D [Concomitant]
     Dosage: 500-125 (UNITS UNSPECIFIED)
     Dates: start: 20090916
  2. VICODIN [Concomitant]
     Active Substance: ACETAMINOPHEN\HYDROCODONE BITARTRATE
     Dosage: 5-500MG
     Dates: start: 20120505
  3. COPAXONE [Suspect]
     Active Substance: GLATIRAMER ACETATE
     Indication: MULTIPLE SCLEROSIS
     Dates: start: 20150217
  4. CALCIUM/D [Concomitant]
     Dates: start: 20120505
  5. NASONEX SPR [Concomitant]
     Dosage: 50MCG/AC
     Dates: start: 20120505
  6. NEXIUM [Concomitant]
     Active Substance: ESOMEPRAZOLE MAGNESIUM
     Dates: start: 20120505
  7. NYSTOP [Concomitant]
     Active Substance: NYSTATIN
     Dosage: 100000 (UNITS UNSPECIFIED)
     Dates: start: 20120505
  8. LIDODERM DIS [Concomitant]
  9. PLAVIX [Concomitant]
     Active Substance: CLOPIDOGREL BISULFATE
     Dates: start: 20120505
  10. SINGULAIR [Concomitant]
     Active Substance: MONTELUKAST SODIUM
     Dates: start: 20090916
  11. WELLBUTRIN XL [Concomitant]
     Active Substance: BUPROPION HYDROCHLORIDE
     Dates: start: 20090916
  12. SYNTHROID [Concomitant]
     Active Substance: LEVOTHYROXINE SODIUM
  13. WELLBUTRIN XL [Concomitant]
     Active Substance: BUPROPION HYDROCHLORIDE
     Dates: start: 20090916
  14. ADVAIR DISKU [Concomitant]
     Dosage: 250/50 (UNITS UNSPECIFIED)
     Dates: start: 20120505
  15. BUDEPRION XL [Concomitant]
     Active Substance: BUPROPION HYDROCHLORIDE
     Dates: start: 20120505
  16. KLONOPIN [Concomitant]
     Active Substance: CLONAZEPAM
     Dates: start: 20120505
  17. SYNTHROID [Concomitant]
     Active Substance: LEVOTHYROXINE SODIUM
     Dates: start: 20090916
  18. BUDEPRION XL [Concomitant]
     Active Substance: BUPROPION HYDROCHLORIDE
     Dates: start: 20120505
  19. MULTIVITAMIN [Concomitant]
     Active Substance: VITAMINS
     Dates: start: 20120505
  20. RANITIDINE. [Concomitant]
     Active Substance: RANITIDINE
     Dates: start: 20090916
  21. SINGULAIR [Concomitant]
     Active Substance: MONTELUKAST SODIUM
     Dates: start: 20120505
  22. VITAMIN B COMPLEX [Concomitant]
     Active Substance: CYANOCOBALAMIN\DEXPANTHENOL\NIACINAMIDE\PYRIDOXINE HYDROCHLORIDE\RIBOFLAVIN 5^-PHOSPHATE SODIUM\THIAMINE HYDROCHLORIDE\VITAMIN B COMPLEX
     Dates: start: 20120505
  23. DILTIAZEM. [Concomitant]
     Active Substance: DILTIAZEM
     Dosage: 120 MILLIGRAM DAILY;
     Dates: start: 20120505
  24. KLONOPIN [Concomitant]
     Active Substance: CLONAZEPAM
     Dates: start: 20120505
  25. LINZESS [Concomitant]
     Active Substance: LINACLOTIDE
     Dates: start: 20120505

REACTIONS (2)
  - Fatigue [Unknown]
  - Musculoskeletal stiffness [Unknown]
